FAERS Safety Report 6581648-5 (Version None)
Quarter: 2010Q1

REPORT INFORMATION
  Report Type: 
  Country: None (occurrence: None)
  Receive Date: 20100215
  Receipt Date: 20100205
  Transmission Date: 20100710
  Serious: Yes (Other)
  Sender: FDA-Public Use
  Company Number: FR-ABBOTT-09P-056-0614546-00

PATIENT
  Sex: Male

DRUGS (3)
  1. ENANTONE LP 11.25 MG PREP INJ [Suspect]
     Indication: PROSTATE CANCER
     Route: 058
     Dates: start: 20090408
  2. ENANTONE LP 30 MG PREP INJ [Suspect]
     Indication: PROSTATE CANCER
     Route: 058
     Dates: start: 20090805
  3. CRESTOR [Concomitant]
     Indication: HYPERCHOLESTEROLAEMIA
     Route: 048

REACTIONS (2)
  - INJECTION SITE NODULE [None]
  - INJECTION SITE PAIN [None]
